FAERS Safety Report 10941042 (Version 2)
Quarter: 2015Q2

REPORT INFORMATION
  Report Type: Spontaneous
  Country: US (occurrence: US)
  Receive Date: 20150322
  Receipt Date: 20150524
  Transmission Date: 20150821
  Serious: No
  Sender: FDA-Public Use
  Company Number: US-JNJFOC-20130619679

PATIENT
  Age: 57 Year
  Sex: Female

DRUGS (11)
  1. NEXIUM [Concomitant]
     Active Substance: ESOMEPRAZOLE MAGNESIUM
     Route: 048
  2. GLUCOPHAGE [Concomitant]
     Active Substance: METFORMIN HYDROCHLORIDE
     Route: 048
  3. INVOKANA [Suspect]
     Active Substance: CANAGLIFLOZIN
     Indication: TYPE 2 DIABETES MELLITUS
     Route: 048
     Dates: start: 201306
  4. GABAPENTIN. [Concomitant]
     Active Substance: GABAPENTIN
     Route: 048
  5. DETROL [Concomitant]
     Active Substance: TOLTERODINE TARTRATE
     Route: 048
  6. ESTRADIOL. [Concomitant]
     Active Substance: ESTRADIOL
     Route: 048
  7. IBUPROFEN. [Concomitant]
     Active Substance: IBUPROFEN
     Route: 048
  8. LORATADINE. [Concomitant]
     Active Substance: LORATADINE
     Route: 048
  9. TRIAMTERENE AND HYDROCHLOROTHIAZIDE [Concomitant]
     Active Substance: HYDROCHLOROTHIAZIDE\TRIAMTERENE
     Dosage: 37.5/25 MG
     Route: 048
  10. FLUOXETINE [Concomitant]
     Active Substance: FLUOXETINE\FLUOXETINE HYDROCHLORIDE
     Route: 048
  11. LIPITOR [Concomitant]
     Active Substance: ATORVASTATIN CALCIUM
     Route: 048

REACTIONS (4)
  - Pollakiuria [Unknown]
  - Glycosylated haemoglobin increased [Unknown]
  - Rash [Not Recovered/Not Resolved]
  - Glucose urine present [Not Recovered/Not Resolved]

NARRATIVE: CASE EVENT DATE: 201306
